FAERS Safety Report 8203017-4 (Version None)
Quarter: 2012Q1

REPORT INFORMATION
  Report Type: 
  Country: None (occurrence: None)
  Receive Date: 20120312
  Receipt Date: 20120302
  Transmission Date: 20120608
  Serious: Yes (Hospitalization)
  Sender: FDA-Public Use
  Company Number: GR-MEDIMMUNE-MEDI-0014251

PATIENT
  Age: 3 Month
  Sex: Male
  Weight: 7 kg

DRUGS (3)
  1. COMBINED VACCINE [Concomitant]
  2. VACCINE FOR ROTAVIRUS [Concomitant]
  3. SYNAGIS [Suspect]
     Dates: start: 20111101, end: 20111101

REACTIONS (1)
  - BRONCHIOLITIS [None]
